FAERS Safety Report 22005855 (Version 2)
Quarter: 2023Q1

REPORT INFORMATION
  Report Type: Spontaneous
  Country: CA (occurrence: CA)
  Receive Date: 20230217
  Receipt Date: 20230313
  Transmission Date: 20230418
  Serious: Yes (Death, Other)
  Sender: FDA-Public Use
  Company Number: CA-JNJFOC-20230234713

PATIENT
  Age: 74 Year
  Sex: Female

DRUGS (2)
  1. REMICADE [Suspect]
     Active Substance: INFLIXIMAB
     Indication: Proctitis ulcerative
     Route: 041
  2. METHOTREXATE [Concomitant]
     Active Substance: METHOTREXATE
     Indication: Proctitis ulcerative

REACTIONS (5)
  - Large intestine perforation [Fatal]
  - Sepsis [Fatal]
  - Pelvic abscess [Fatal]
  - Proctitis ulcerative [Fatal]
  - Therapeutic product effect incomplete [Fatal]
